FAERS Safety Report 18461319 (Version 1)
Quarter: 2020Q4

REPORT INFORMATION
  Report Type: Spontaneous
  Country: US (occurrence: US)
  Receive Date: 20201104
  Receipt Date: 20201104
  Transmission Date: 20210114
  Serious: No
  Sender: FDA-Public Use
  Company Number: US-AUROBINDO-AUR-APL-2020-013370

PATIENT
  Age: 80 Year
  Sex: Female
  Weight: 51.7 kg

DRUGS (2)
  1. ATIVAN [Concomitant]
     Active Substance: LORAZEPAM
     Indication: PRODUCT USED FOR UNKNOWN INDICATION
     Dosage: SINCE 40 YEARS
     Route: 065
  2. ESZOPICLONE  TABLET 2 MG USP [Suspect]
     Active Substance: ESZOPICLONE
     Indication: INSOMNIA
     Dosage: 1 DOSAGE FORM, ONCE A DAY
     Route: 065
     Dates: start: 20200227

REACTIONS (1)
  - Drug ineffective [Unknown]

NARRATIVE: CASE EVENT DATE: 20200227
